FAERS Safety Report 7268365-3 (Version None)
Quarter: 2011Q1

REPORT INFORMATION
  Report Type: 
  Country: None (occurrence: None)
  Receive Date: 20110201
  Receipt Date: 20110126
  Transmission Date: 20110831
  Serious: Yes (Other)
  Sender: FDA-Public Use
  Company Number: US-ABBOTT-11P-163-0700733-00

PATIENT
  Age: 34 Year
  Sex: Male

DRUGS (6)
  1. VICODIN [Suspect]
     Indication: PRODUCT USED FOR UNKNOWN INDICATION
     Dates: start: 20090101
  2. ZOLOFT [Suspect]
     Indication: PRODUCT USED FOR UNKNOWN INDICATION
     Dates: start: 20090101
  3. KALACTIN [Suspect]
     Indication: ILL-DEFINED DISORDER
     Dates: start: 20090101
  4. TEGRETOL [Suspect]
     Indication: PRODUCT USED FOR UNKNOWN INDICATION
     Dates: start: 20090101
  5. UNKNOWN WATER PILL [Suspect]
     Indication: PRODUCT USED FOR UNKNOWN INDICATION
     Dates: start: 20090101
  6. CHANTIX [Suspect]
     Indication: EX-TOBACCO USER

REACTIONS (1)
  - SUICIDE ATTEMPT [None]
